FAERS Safety Report 4575413-8 (Version None)
Quarter: 2005Q1

REPORT INFORMATION
  Report Type: 
  Country: None (occurrence: None)
  Receive Date: 20050128
  Receipt Date: 20050128
  Transmission Date: 20050727
  Serious: Yes (Other)
  Sender: FDA-Public Use
  Company Number: None

PATIENT
  Age: 56 Year
  Sex: Male
  Weight: 113.8529 kg

DRUGS (7)
  1. AMIFOSTINE [Suspect]
     Indication: TONSIL CANCER
     Dosage: 500MG  SUBCUTANEOUS
     Route: 058
     Dates: start: 20041129
  2. AMIFOSTINE [Suspect]
     Indication: TONSIL CANCER
     Dosage: 500MG  SUBCUTANEOUS
     Route: 058
     Dates: start: 20041130
  3. AMIFOSTINE [Suspect]
     Indication: TONSIL CANCER
     Dosage: 500MG  SUBCUTANEOUS
     Route: 058
     Dates: start: 20041201
  4. CISPLATIN [Concomitant]
  5. ALOXI [Concomitant]
  6. MANNITOL [Concomitant]
  7. EMEND [Concomitant]

REACTIONS (4)
  - FATIGUE [None]
  - GENERALISED OEDEMA [None]
  - RASH ERYTHEMATOUS [None]
  - RASH PRURITIC [None]
